FAERS Safety Report 5849028-5 (Version None)
Quarter: 2008Q3

REPORT INFORMATION
  Report Type: 
  Country: None (occurrence: None)
  Receive Date: 20080815
  Receipt Date: 20080804
  Transmission Date: 20090109
  Serious: Yes (Life-Threatening, Hospitalization)
  Sender: FDA-Public Use
  Company Number: 2008JP002559

PATIENT
  Age: 39 Year
  Sex: Male
  Weight: 65 kg

DRUGS (17)
  1. TACROLIMUS [Suspect]
     Indication: RENAL TRANSPLANT
     Dosage: 5 MG, BID, ORAL, 4 MG, BID, ORAL, 3 MG BID,ORAL
     Route: 048
     Dates: start: 20080509, end: 20080516
  2. TACROLIMUS [Suspect]
     Indication: RENAL TRANSPLANT
     Dosage: 5 MG, BID, ORAL, 4 MG, BID, ORAL, 3 MG BID,ORAL
     Route: 048
     Dates: start: 20080517, end: 20080526
  3. TACROLIMUS [Suspect]
     Indication: RENAL TRANSPLANT
     Dosage: 5 MG, BID, ORAL, 4 MG, BID, ORAL, 3 MG BID,ORAL
     Route: 048
     Dates: start: 20080527, end: 20080530
  4. CELLCEPT [Concomitant]
  5. FAMOTIDINE [Concomitant]
  6. METISONE (METHYLPREDNISOLONE) [Concomitant]
  7. LASIX [Concomitant]
  8. CIPROFLOXACIN HCL [Concomitant]
  9. LAMIVUDINE [Concomitant]
  10. VALCYTE [Concomitant]
  11. URSO 250 [Concomitant]
  12. CALCIUM CARBONATE [Concomitant]
  13. FOLIC ACID [Concomitant]
  14. FERALL (ASCORBIC ACID, FOLIC ACID, FERROUS FUMARATE) [Concomitant]
  15. ATIVAN [Concomitant]
  16. IMODIUM [Concomitant]
  17. TINTEN [Concomitant]

REACTIONS (17)
  - ABDOMINAL PAIN LOWER [None]
  - ALTERED STATE OF CONSCIOUSNESS [None]
  - BLOOD PRESSURE SYSTOLIC DECREASED [None]
  - COMPARTMENT SYNDROME [None]
  - HAEMATOMA INFECTION [None]
  - HAEMODIALYSIS [None]
  - HAEMOGLOBIN DECREASED [None]
  - HAEMORRHAGE [None]
  - OLIGURIA [None]
  - PERIRENAL HAEMATOMA [None]
  - PLEURAL EFFUSION [None]
  - PSEUDOMONAS INFECTION [None]
  - PYREXIA [None]
  - RENAL TRANSPLANT [None]
  - SHOCK [None]
  - VASCULAR GRAFT [None]
  - WOUND SECRETION [None]
